FAERS Safety Report 18872719 (Version 1)
Quarter: 2021Q1

REPORT INFORMATION
  Report Type: Spontaneous
  Country: FR (occurrence: FR)
  Receive Date: 20210210
  Receipt Date: 20210210
  Transmission Date: 20210420
  Serious: Yes (Hospitalization)
  Sender: FDA-Public Use
  Company Number: FR-GLAXOSMITHKLINE-FR2021029679

PATIENT
  Age: 32 Year
  Sex: Female
  Weight: 116.8 kg

DRUGS (4)
  1. TERALITHE [Suspect]
     Active Substance: LITHIUM CARBONATE
     Indication: SCHIZOAFFECTIVE DISORDER
     Dosage: UNK (UNDETERMINED QUANTITY)
     Route: 048
     Dates: start: 20210114, end: 20210114
  2. THERALENE (ALIMEMAZINE) [Suspect]
     Active Substance: TRIMEPRAZINE
     Indication: INSOMNIA
     Dosage: 250 MG SINGLE (TOTAL)
     Route: 048
     Dates: start: 20210114, end: 20210114
  3. SERESTA [Suspect]
     Active Substance: OXAZEPAM
     Indication: ANXIETY DISORDER
     Dosage: UNK (LARGE QUANTITY UNKNOWN)
     Route: 048
     Dates: start: 20210114, end: 20210114
  4. LAMICTAL [Suspect]
     Active Substance: LAMOTRIGINE
     Indication: SCHIZOAFFECTIVE DISORDER
     Dosage: UNK (UNDETERMINED QUANTITY)
     Route: 048
     Dates: start: 20210114, end: 20210114

REACTIONS (2)
  - Somnolence [Recovered/Resolved]
  - Antipsychotic drug level increased [Recovered/Resolved]

NARRATIVE: CASE EVENT DATE: 20210114
